FAERS Safety Report 8223801-0 (Version None)
Quarter: 2012Q1

REPORT INFORMATION
  Report Type: 
  Country: None (occurrence: None)
  Receive Date: 20120321
  Receipt Date: 20120321
  Transmission Date: 20120608
  Serious: No
  Sender: FDA-Public Use
  Company Number: None

PATIENT
  Age: 51 Year
  Sex: Female
  Weight: 113.39 kg

DRUGS (1)
  1. LYRICA [Suspect]
     Indication: FIBROMYALGIA
     Dates: start: 20020616, end: 20021231

REACTIONS (5)
  - DENTAL CARIES [None]
  - BONE SCAN ABNORMAL [None]
  - VIOLENCE-RELATED SYMPTOM [None]
  - BLOOD CALCIUM DECREASED [None]
  - TOOTH FRACTURE [None]
